FAERS Safety Report 6611579-3 (Version None)
Quarter: 2010Q1

REPORT INFORMATION
  Report Type: 
  Country: None (occurrence: None)
  Receive Date: 20100303
  Receipt Date: 20100301
  Transmission Date: 20100710
  Serious: Yes (Death, Hospitalization)
  Sender: FDA-Public Use
  Company Number: PHEH2010US01740

PATIENT
  Sex: Female

DRUGS (11)
  1. EXJADE [Suspect]
     Indication: IRON METABOLISM DISORDER
     Dosage: 1250 MG, QD
     Route: 048
     Dates: start: 20100106, end: 20100124
  2. METHOCARBAMOL [Concomitant]
  3. ZETIA [Concomitant]
     Dosage: 10 MG, UNK
  4. PROTONIX [Concomitant]
     Dosage: 40 MG, UNK
  5. LOPRESSOR [Concomitant]
     Dosage: 20 UNK, UNK
  6. LEXAPRO [Concomitant]
     Dosage: 10 MG, UNK
  7. NORVASC [Concomitant]
  8. TRAMADOL HCL [Concomitant]
  9. HYDROCODONE [Concomitant]
  10. XANAX [Concomitant]
     Dosage: UNK
  11. TOPROL-XL [Concomitant]

REACTIONS (7)
  - DISEASE PROGRESSION [None]
  - HAEMORRHAGE INTRACRANIAL [None]
  - HYPERSENSITIVITY [None]
  - INFECTION [None]
  - LIP SWELLING [None]
  - RASH GENERALISED [None]
  - THROMBOCYTOPENIA [None]
